FAERS Safety Report 22850088 (Version 7)
Quarter: 2025Q1

REPORT INFORMATION
  Report Type: Report from Study
  Country: CA (occurrence: CA)
  Receive Date: 20230822
  Receipt Date: 20250227
  Transmission Date: 20250409
  Serious: Yes (Other)
  Sender: TAKEDA
  Company Number: CA-TAKEDA-CA202013919

PATIENT
  Sex: Female
  Weight: 50 kg

DRUGS (21)
  1. TEDUGLUTIDE [Suspect]
     Active Substance: TEDUGLUTIDE
     Indication: Short-bowel syndrome
     Dosage: 2.6 MILLIGRAM, QD
     Dates: start: 20200415
  2. TEDUGLUTIDE [Suspect]
     Active Substance: TEDUGLUTIDE
     Dosage: UNK UNK, QD
  3. TEDUGLUTIDE [Suspect]
     Active Substance: TEDUGLUTIDE
     Dosage: 2.25 MILLIGRAM, QD
  4. TEDUGLUTIDE [Suspect]
     Active Substance: TEDUGLUTIDE
     Dosage: 2.6 MILLIGRAM, QD
     Dates: start: 20200420
  5. TEDUGLUTIDE [Suspect]
     Active Substance: TEDUGLUTIDE
     Dosage: 2.4 MILLIGRAM, QD
  6. COVID-19 VACCINE NOS [Suspect]
     Active Substance: COVID-19 VACCINE
     Indication: COVID-19 prophylaxis
  7. VENOXIL [Concomitant]
     Dosage: UNK UNK, QD
  8. IMODIUM [Concomitant]
     Active Substance: LOPERAMIDE HYDROCHLORIDE
     Dosage: UNK UNK, TID
     Dates: start: 20200424
  9. PANTOPRAZOLE SODIUM [Concomitant]
     Active Substance: PANTOPRAZOLE SODIUM
     Dosage: 40 MILLIGRAM, BID
  10. VITAMIN A [Concomitant]
     Active Substance: VITAMIN A
     Dosage: UNK UNK, QD
  11. VITAMIN E [Concomitant]
     Active Substance: .ALPHA.-TOCOPHEROL
     Dosage: UNK UNK, BID
  12. VITAMIN D [Concomitant]
     Active Substance: VITAMIN D NOS
     Dosage: 10000 INTERNATIONAL UNIT, QD
  13. ROCALTROL [Concomitant]
     Active Substance: CALCITRIOL
     Dosage: 0.25 MILLIGRAM, BID
  14. ROCALTROL [Concomitant]
     Active Substance: CALCITRIOL
     Dosage: 50 MILLIGRAM, BID
  15. CALCIUM CARBONATE\ERGOCALCIFEROL\RETINOL [Concomitant]
     Active Substance: CALCIUM CARBONATE\ERGOCALCIFEROL\RETINOL
     Dosage: UNK UNK, QD
  16. INSULIN NOS [Concomitant]
     Active Substance: INSULIN NOS
  17. CLINDAMYCIN [Concomitant]
     Active Substance: CLINDAMYCIN
     Dosage: 900 MILLIGRAM, BID
  18. GRAVOL [Concomitant]
     Active Substance: DIMENHYDRINATE
  19. DULOXETINE [Concomitant]
     Active Substance: DULOXETINE
     Indication: Back pain
     Dosage: 30 MILLIGRAM, QD
  20. MIRTAZAPINE [Concomitant]
     Active Substance: MIRTAZAPINE
     Indication: Back pain
  21. MIRTAZAPINE [Concomitant]
     Active Substance: MIRTAZAPINE
     Indication: Flatulence

REACTIONS (27)
  - Nephrolithiasis [Not Recovered/Not Resolved]
  - Fatigue [Recovered/Resolved]
  - Urine output increased [Unknown]
  - Faecal volume increased [Unknown]
  - Back pain [Recovered/Resolved]
  - Night sweats [Unknown]
  - Blood glucose decreased [Unknown]
  - Palpitations [Unknown]
  - Swelling [Recovering/Resolving]
  - Diarrhoea [Not Recovered/Not Resolved]
  - Memory impairment [Unknown]
  - Vitamin D decreased [Unknown]
  - Weight decreased [Unknown]
  - Illness [Unknown]
  - Procedural pain [Not Recovered/Not Resolved]
  - Product dose omission issue [Unknown]
  - Haemoglobin decreased [Not Recovered/Not Resolved]
  - Product dose omission in error [Unknown]
  - Magnesium deficiency [Unknown]
  - Weight increased [Unknown]
  - Insomnia [Recovering/Resolving]
  - Flatulence [Recovering/Resolving]
  - Abdominal distension [Unknown]
  - Dyspnoea [Recovered/Resolved]
  - Vomiting [Unknown]
  - Oedema peripheral [Recovered/Resolved]
  - Abdominal pain [Recovered/Resolved]

NARRATIVE: CASE EVENT DATE: 20200101
